FAERS Safety Report 5482064-X (Version None)
Quarter: 2007Q4

REPORT INFORMATION
  Report Type: 
  Country: None (occurrence: None)
  Receive Date: 20071005
  Receipt Date: 20070927
  Transmission Date: 20080405
  Serious: Yes (Other)
  Sender: FDA-Public Use
  Company Number: TUK2007A00104

PATIENT
  Age: 68 Year
  Sex: Male

DRUGS (4)
  1. PIOGLITAZONE [Suspect]
  2. ASPRIN (ACETYLSALICYLIC ACID) [Concomitant]
  3. METFORMIN HCL [Concomitant]
  4. ROSUVASTATIN (ROSUVASTATIN) [Concomitant]

REACTIONS (1)
  - PALPITATIONS [None]
